FAERS Safety Report 9217294 (Version 1)
Quarter: 2013Q2

REPORT INFORMATION
  Report Type: Spontaneous
  Country: US (occurrence: None)
  Receive Date: 20130404
  Receipt Date: 20130404
  Transmission Date: 20140414
  Serious: Yes (Life-Threatening, Other)
  Sender: FDA-Public Use
  Company Number: 001505292A

PATIENT
  Age: 32 Year
  Sex: Female

DRUGS (1)
  1. PROACTIV RENEWING CLEANSER [Suspect]
     Indication: ACNE
     Dosage: ONCE DAILY DERMAL
     Dates: start: 20130312, end: 20130314

REACTIONS (7)
  - Rash [None]
  - Burning sensation [None]
  - Pruritus [None]
  - Local swelling [None]
  - Swelling face [None]
  - Dyspnoea [None]
  - Hypersensitivity [None]
